FAERS Safety Report 4359537-6 (Version None)
Quarter: 2004Q2

REPORT INFORMATION
  Report Type: 
  Country: None (occurrence: None)
  Receive Date: 20040514
  Receipt Date: 20040514
  Transmission Date: 20050107
  Serious: Yes (Hospitalization)
  Sender: FDA-Public Use
  Company Number: None

PATIENT
  Age: 79 Year
  Sex: Male

DRUGS (8)
  1. CLONIDINE HCL [Suspect]
     Indication: HYPERTENSION
     Dosage: 0.1 MG BID
     Dates: start: 20010501
  2. HYDROCHLOROTHIAZIDE [Suspect]
     Indication: HYPERTENSION
     Dosage: 25 MG QD
     Dates: start: 20000401
  3. NIFEDIPINE [Suspect]
     Indication: HYPERTENSION
     Dosage: 90 MG QD
     Dates: start: 20000601
  4. ZOLADEX [Concomitant]
  5. OMEPRAZOLE [Concomitant]
  6. KCL TAB [Concomitant]
  7. TERAZOSIN HCL [Concomitant]
  8. FOSINOPRIL SODIUM [Concomitant]

REACTIONS (2)
  - BRADYCARDIA [None]
  - HYPOKALAEMIA [None]
